FAERS Safety Report 8193111-9 (Version None)
Quarter: 2012Q1

REPORT INFORMATION
  Report Type: 
  Country: None (occurrence: None)
  Receive Date: 20120308
  Receipt Date: 20120308
  Transmission Date: 20120608
  Serious: Yes (Other)
  Sender: FDA-Public Use
  Company Number: None

PATIENT
  Age: 63 Year
  Sex: Female
  Weight: 52.616 kg

DRUGS (1)
  1. METRONIDAZOLE [Suspect]
     Indication: ROSACEA
     Dosage: APPLY AND GENTLY MASSAGE INTO
     Route: 003

REACTIONS (2)
  - CHEMICAL BURN OF SKIN [None]
  - SKIN EXFOLIATION [None]
